FAERS Safety Report 17238511 (Version 1)
Quarter: 2020Q1

REPORT INFORMATION
  Report Type: Spontaneous
  Country: FR (occurrence: FR)
  Receive Date: 20200106
  Receipt Date: 20200106
  Transmission Date: 20200409
  Serious: Yes (Hospitalization)
  Sender: FDA-Public Use
  Company Number: FR-MYLANLABS-2020M1001246

PATIENT
  Age: 2 Year
  Sex: Male
  Weight: 12.2 kg

DRUGS (3)
  1. VINCRISTINE HOSPIRA [Suspect]
     Active Substance: VINCRISTINE
     Indication: NEUROBLASTOMA
     Dosage: 1.5 MILLIGRAM/SQ. METER,CYCLE/2MG/2ML
     Route: 042
     Dates: start: 20190118, end: 20190325
  2. ETOPOSIDE MYLAN 20 MG/ML, SOLUTION ? DILUER POUR PERFUSION [Suspect]
     Active Substance: ETOPOSIDE
     Indication: NEUROBLASTOMA
     Dosage: 175 MILLIGRAM/SQ. METER, CYCLE
     Route: 042
     Dates: start: 20190118, end: 20190326
  3. CISPLATIN MYLAN [Suspect]
     Active Substance: CISPLATIN
     Indication: NEUROBLASTOMA
     Dosage: 80 MILLIGRAM/SQ. METER, CYCLE
     Route: 042
     Dates: start: 20190128, end: 20190314

REACTIONS (1)
  - Thrombotic microangiopathy [Recovered/Resolved]

NARRATIVE: CASE EVENT DATE: 20190327
